FAERS Safety Report 12478438 (Version 1)
Quarter: 2016Q2

REPORT INFORMATION
  Report Type: Spontaneous
  Country: US (occurrence: US)
  Receive Date: 20160618
  Receipt Date: 20160618
  Transmission Date: 20160815
  Serious: No
  Sender: FDA-Public Use
  Company Number: US-009507513-1606USA007837

PATIENT
  Sex: Female
  Weight: 50.3 kg

DRUGS (1)
  1. EMEND [Suspect]
     Active Substance: APREPITANT

REACTIONS (1)
  - Hypersensitivity [Unknown]
